FAERS Safety Report 11515848 (Version 3)
Quarter: 2015Q4

REPORT INFORMATION
  Report Type: Spontaneous
  Country: US (occurrence: US)
  Receive Date: 20150916
  Receipt Date: 20151127
  Transmission Date: 20160304
  Serious: No
  Sender: FDA-Public Use
  Company Number: US-009507513-1509USA006942

PATIENT
  Age: 36 Year
  Sex: Female
  Weight: 104.31 kg

DRUGS (3)
  1. FOLLISTIM [Suspect]
     Active Substance: FOLLITROPIN
     Dosage: 300 DF, QD
     Route: 058
     Dates: start: 20150710, end: 20150713
  2. FOLLISTIM [Suspect]
     Active Substance: FOLLITROPIN
     Indication: OVULATION INDUCTION
     Dosage: 300 DF, QD
     Route: 058
     Dates: start: 20150706, end: 20150713
  3. FOLLISTIM [Suspect]
     Active Substance: FOLLITROPIN
     Dosage: 450 DF, QD
     Dates: start: 20150710, end: 20150713

REACTIONS (1)
  - Drug effect incomplete [Unknown]

NARRATIVE: CASE EVENT DATE: 20150706
